FAERS Safety Report 22295367 (Version 1)
Quarter: 2023Q2

REPORT INFORMATION
  Report Type: Spontaneous
  Country: CA (occurrence: CA)
  Receive Date: 20230508
  Receipt Date: 20230508
  Transmission Date: 20230721
  Serious: Yes (Other)
  Sender: FDA-Public Use
  Company Number: CA-PFIZER INC-PV202300079954

PATIENT
  Age: 53 Year
  Sex: Female

DRUGS (1)
  1. ABROCITINIB [Suspect]
     Active Substance: ABROCITINIB
     Indication: Dermatitis atopic
     Dosage: 50 MG

REACTIONS (4)
  - Substance abuse [Unknown]
  - Familial hypertriglyceridaemia [Unknown]
  - Non-alcoholic fatty liver [Unknown]
  - Anxiety [Unknown]
